FAERS Safety Report 9124888 (Version 2)
Quarter: 2013Q1

REPORT INFORMATION
  Report Type: Spontaneous
  Country: DE (occurrence: DE)
  Receive Date: 20130121
  Receipt Date: 20130307
  Transmission Date: 20140127
  Serious: Yes (Other)
  Sender: FDA-Public Use
  Company Number: DE-TEVA-379743GER

PATIENT
  Sex: Male

DRUGS (1)
  1. CEFUROXIM-RATIOPHARM 250 MG FILMTABLETTEN [Suspect]
     Route: 048

REACTIONS (1)
  - Loss of consciousness [Unknown]
